FAERS Safety Report 17097794 (Version 1)
Quarter: 2019Q4

REPORT INFORMATION
  Report Type: Spontaneous
  Country: US (occurrence: US)
  Receive Date: 20191105
  Receipt Date: 20191105
  Transmission Date: 20200122
  Serious: No
  Sender: FDA-Public Use
  Company Number: None

PATIENT
  Age: 56 Year
  Sex: Male

DRUGS (1)
  1. TRUVADA [Suspect]
     Active Substance: EMTRICITABINE\TENOFOVIR DISOPROXIL FUMARATE
     Dosage: ?          OTHER DOSE:200-300MG;?
     Route: 048
     Dates: start: 201808

REACTIONS (3)
  - Arthralgia [None]
  - Therapy cessation [None]
  - Bone pain [None]

NARRATIVE: CASE EVENT DATE: 20191105
